FAERS Safety Report 12507706 (Version 1)
Quarter: 2016Q2

REPORT INFORMATION
  Report Type: Spontaneous
  Country: GB (occurrence: GB)
  Receive Date: 20160629
  Receipt Date: 20160629
  Transmission Date: 20160815
  Serious: Yes (Other)
  Sender: FDA-Public Use
  Company Number: GB-MYLANLABS-2016M1026298

PATIENT

DRUGS (2)
  1. SEROXAT [Suspect]
     Active Substance: PAROXETINE HYDROCHLORIDE
     Indication: PRODUCT USED FOR UNKNOWN INDICATION
     Dosage: UNK (UNK)
     Route: 065
     Dates: start: 2002
  2. PAROXETINE. [Suspect]
     Active Substance: PAROXETINE
     Indication: PRODUCT USED FOR UNKNOWN INDICATION
     Dosage: UNK
     Route: 065
     Dates: start: 20020722

REACTIONS (25)
  - Memory impairment [Unknown]
  - Feeling guilty [Unknown]
  - Confusional state [Unknown]
  - Fatigue [Unknown]
  - Stress [Unknown]
  - Insomnia [Unknown]
  - Agitation [Unknown]
  - Chest pain [Unknown]
  - Self esteem decreased [Unknown]
  - Suicidal ideation [Unknown]
  - Nausea [Unknown]
  - Sleep disorder [Unknown]
  - Anxiety [Unknown]
  - Depression [Unknown]
  - Panic attack [Unknown]
  - Lethargy [Unknown]
  - Mood swings [Unknown]
  - Drug withdrawal syndrome [Unknown]
  - Libido decreased [Unknown]
  - Depressed mood [Unknown]
  - Paraesthesia [Unknown]
  - Tremor [Unknown]
  - Disturbance in attention [Unknown]
  - Mental disorder [Unknown]
  - Obsessive-compulsive disorder [Unknown]

NARRATIVE: CASE EVENT DATE: 200302
